FAERS Safety Report 9374784 (Version 1)
Quarter: 2013Q2

REPORT INFORMATION
  Report Type: Other
  Country: IT (occurrence: IT)
  Receive Date: 20130628
  Receipt Date: 20130628
  Transmission Date: 20140414
  Serious: Yes (Other)
  Sender: FDA-Public Use
  Company Number: IT-SUN PHARMACEUTICAL INDUSTRIES LTD-2013SUN00907

PATIENT
  Sex: 0

DRUGS (1)
  1. GEMCITABINA SUN 200 MG POLVERE PER SOLUZIONE PER INFUSIONE [Suspect]
     Indication: PLEURAL MESOTHELIOMA
     Dosage: 2000 MG, CYCLICAL
     Route: 042
     Dates: start: 20130515, end: 20130605

REACTIONS (2)
  - Dysgeusia [Unknown]
  - Neutropenia [Unknown]
